FAERS Safety Report 15788201 (Version 2)
Quarter: 2019Q1

REPORT INFORMATION
  Report Type: Spontaneous
  Country: US (occurrence: US)
  Receive Date: 20190104
  Receipt Date: 20190108
  Transmission Date: 20190417
  Serious: Yes (Hospitalization, Other)
  Sender: FDA-Public Use
  Company Number: US-ROCHE-2238229

PATIENT

DRUGS (2)
  1. PEGASYS [Suspect]
     Active Substance: PEGINTERFERON ALFA-2A
     Indication: HEPATITIS C
     Route: 065
  2. RIBAVIRIN. [Suspect]
     Active Substance: RIBAVIRIN
     Indication: HEPATITIS C
     Route: 065

REACTIONS (11)
  - Migraine [Unknown]
  - Spinal pain [Unknown]
  - Neck pain [Unknown]
  - Anger [Unknown]
  - Memory impairment [Unknown]
  - Fatigue [Unknown]
  - Suicidal ideation [Unknown]
  - Bone pain [Unknown]
  - Dehydration [Unknown]
  - Myalgia [Unknown]
  - Dyspnoea [Unknown]
